FAERS Safety Report 5648628-5 (Version None)
Quarter: 2008Q1

REPORT INFORMATION
  Report Type: 
  Country: None (occurrence: None)
  Receive Date: 20080229
  Receipt Date: 20080213
  Transmission Date: 20080703
  Serious: Yes (Hospitalization)
  Sender: FDA-Public Use
  Company Number: 530#6#2008-00007

PATIENT
  Age: 66 Year
  Sex: Female

DRUGS (12)
  1. NEUPRO [Suspect]
     Indication: PARKINSON'S DISEASE
     Dosage: SEE IMAGE
     Route: 062
     Dates: start: 20070201, end: 20070201
  2. NEUPRO [Suspect]
     Indication: PARKINSON'S DISEASE
     Dosage: SEE IMAGE
     Route: 062
     Dates: start: 20070201, end: 20070201
  3. NEUPRO [Suspect]
     Indication: PARKINSON'S DISEASE
     Dosage: SEE IMAGE
     Route: 062
     Dates: start: 20070201, end: 20070301
  4. (LEVODOPA/CARBIDOPA) 100MG/25MG, TABLETS (CARBIDOPA, LEVODOPA) (LEVODO [Suspect]
     Indication: PARKINSON'S DISEASE
     Dosage: 100MG/25MG
     Dates: start: 20070201
  5. (LEVLDOPA/CARBIDOPA/ENTACAPON) 100MG/25MG/200MG, TABLETS [Suspect]
     Indication: PARKINSON'S DISEASE
     Dosage: 100MG/25MG/200MG 5X PER DAY; 100/25/200MG 4X PER DAY
     Route: 048
     Dates: start: 20070201, end: 20070417
  6. (LEVLDOPA/CARBIDOPA/ENTACAPON) 100MG/25MG/200MG, TABLETS [Suspect]
     Indication: PARKINSON'S DISEASE
     Dosage: 100MG/25MG/200MG 5X PER DAY; 100/25/200MG 4X PER DAY
     Route: 048
     Dates: start: 20070418
  7. CABERGOLINE 1MG, TABLETS (CABERGOLINE) [Suspect]
     Indication: PARKINSON'S DISEASE
     Dosage: 2MG (1 MG 2 IN 1 DAY(S)); 4 MG (1 IN 4 IN 1 DAY(S)); 6 MG (1 MG 6 IN 1 DAY(S)); ORAL
     Route: 048
     Dates: start: 20070201, end: 20070201
  8. CABERGOLINE 1MG, TABLETS (CABERGOLINE) [Suspect]
     Indication: PARKINSON'S DISEASE
     Dosage: 2MG (1 MG 2 IN 1 DAY(S)); 4 MG (1 IN 4 IN 1 DAY(S)); 6 MG (1 MG 6 IN 1 DAY(S)); ORAL
     Route: 048
     Dates: start: 20070301, end: 20070301
  9. CABERGOLINE 1MG, TABLETS (CABERGOLINE) [Suspect]
     Indication: PARKINSON'S DISEASE
     Dosage: 2MG (1 MG 2 IN 1 DAY(S)); 4 MG (1 IN 4 IN 1 DAY(S)); 6 MG (1 MG 6 IN 1 DAY(S)); ORAL
     Route: 048
     Dates: start: 20070301
  10. ROPINIROLE HCL [Suspect]
     Indication: PARKINSON'S DISEASE
     Dosage: 12 MG (4 MG 3 IN 1 DAY(S)); 16 MG (4 MG 4 IN 1 DAY(S)); ORAL
     Route: 048
     Dates: start: 20051116, end: 20060522
  11. ROPINIROLE HCL [Suspect]
     Indication: PARKINSON'S DISEASE
     Dosage: 12 MG (4 MG 3 IN 1 DAY(S)); 16 MG (4 MG 4 IN 1 DAY(S)); ORAL
     Route: 048
     Dates: start: 20060523, end: 20070131
  12. DOMPERIDONE [Concomitant]

REACTIONS (2)
  - PARKINSON'S DISEASE [None]
  - PHOBIA [None]
